FAERS Safety Report 4417972-1 (Version None)
Quarter: 2004Q2

REPORT INFORMATION
  Report Type: 
  Country: None (occurrence: None)
  Receive Date: 20040622
  Receipt Date: 20031124
  Transmission Date: 20050107
  Serious: Yes (Death)
  Sender: FDA-Public Use
  Company Number: 352715

PATIENT
  Age: 58 Year
  Sex: Male

DRUGS (5)
  1. XELODA [Suspect]
     Indication: RECTAL CANCER
     Dosage: ORAL
     Route: 048
  2. ELOXATIN [Concomitant]
  3. NEULASTA (PEGFILGASTIM) [Concomitant]
  4. ANZEMET [Concomitant]
  5. CAMPTOSAR [Concomitant]

REACTIONS (2)
  - DISEASE PROGRESSION [None]
  - RECTAL CANCER [None]
